FAERS Safety Report 8154020-4 (Version None)
Quarter: 2012Q1

REPORT INFORMATION
  Report Type: 
  Country: None (occurrence: None)
  Receive Date: 20120221
  Receipt Date: 20120221
  Transmission Date: 20120608
  Serious: Yes (Hospitalization)
  Sender: FDA-Public Use
  Company Number: None

PATIENT
  Age: 70 Year
  Sex: Male
  Weight: 81.646 kg

DRUGS (1)
  1. LISINOPRIL [Suspect]
     Dosage: 1 TAB
     Route: 048

REACTIONS (2)
  - LIP SWELLING [None]
  - SWELLING FACE [None]
